FAERS Safety Report 9437591 (Version 1)
Quarter: 2013Q3

REPORT INFORMATION
  Report Type: Spontaneous
  Country: FR (occurrence: FR)
  Receive Date: 20130802
  Receipt Date: 20130802
  Transmission Date: 20140515
  Serious: Yes (Hospitalization)
  Sender: FDA-Public Use
  Company Number: FR-ASTRAZENECA-2013SE57130

PATIENT
  Age: 18579 Day
  Sex: Female

DRUGS (8)
  1. INEXIUM [Suspect]
     Route: 048
     Dates: start: 20130412, end: 20130502
  2. INEXIUM [Suspect]
     Route: 048
     Dates: start: 201301, end: 2013
  3. LANTUS [Concomitant]
  4. CELLCEPT [Concomitant]
     Dates: start: 2012
  5. PROGRAF [Concomitant]
     Dates: start: 201301
  6. CORTANCYL [Concomitant]
  7. PRAVASTATINE [Concomitant]
     Dosage: 20 MG EVERY DAY, AT MIDDAY
  8. BISOPROLOL [Concomitant]

REACTIONS (4)
  - Anaemia [Unknown]
  - Renal failure acute [Unknown]
  - Thrombocytopenia [Recovered/Resolved]
  - Diarrhoea [Unknown]
